FAERS Safety Report 9213814 (Version 5)
Quarter: 2014Q2

REPORT INFORMATION
  Report Type: Spontaneous
  Country: TR (occurrence: TR)
  Receive Date: 20130405
  Receipt Date: 20140529
  Transmission Date: 20141212
  Serious: Yes (Other)
  Sender: FDA-Public Use
  Company Number: TR-AMGEN-TURSP2012084289

PATIENT
  Age: 16 Year
  Sex: Male

DRUGS (3)
  1. ENBREL [Suspect]
     Indication: JUVENILE IDIOPATHIC ARTHRITIS
     Dosage: 25 MG, WEEKLY
     Route: 058
     Dates: start: 20101001
  2. ENBREL [Suspect]
     Dosage: 25 MG, CYCLIC; IRREGULAR USE
     Route: 065
     Dates: end: 201310
  3. CORTISONE [Suspect]
     Indication: JUVENILE IDIOPATHIC ARTHRITIS
     Dosage: UNK
     Route: 048
     Dates: start: 201201, end: 201301

REACTIONS (23)
  - Immunosuppression [Recovered/Resolved]
  - Acne [Recovering/Resolving]
  - Alopecia [Not Recovered/Not Resolved]
  - House dust allergy [Not Recovered/Not Resolved]
  - Mental disorder [Not Recovered/Not Resolved]
  - Depressed mood [Not Recovered/Not Resolved]
  - Oedema [Not Recovered/Not Resolved]
  - Skin fissures [Not Recovered/Not Resolved]
  - Erythema [Not Recovered/Not Resolved]
  - Pain [Not Recovered/Not Resolved]
  - Bedridden [Not Recovered/Not Resolved]
  - Face oedema [Recovered/Resolved]
  - Inappropriate schedule of drug administration [Recovered/Resolved]
  - Dyspnoea [Not Recovered/Not Resolved]
  - Arthralgia [Not Recovered/Not Resolved]
  - Malaise [Unknown]
  - Nasopharyngitis [Recovered/Resolved]
  - Chest pain [Recovered/Resolved]
  - Injection site erythema [Recovered/Resolved]
  - Injection site infection [Recovered/Resolved]
  - Injection site swelling [Recovered/Resolved]
  - Injection site reaction [Not Recovered/Not Resolved]
  - Drug ineffective [Recovered/Resolved]
